FAERS Safety Report 26131884 (Version 1)
Quarter: 2025Q4

REPORT INFORMATION
  Report Type: Spontaneous
  Country: EU (occurrence: EU)
  Receive Date: 20251208
  Receipt Date: 20251208
  Transmission Date: 20260118
  Serious: Yes (Other)
  Sender: PFIZER
  Company Number: None

PATIENT
  Age: 81 Year
  Sex: Male

DRUGS (12)
  1. PANTOPRAZOLE [Suspect]
     Active Substance: PANTOPRAZOLE
     Dosage: 1 DOSAGE FORM, QD
     Route: 048
     Dates: start: 202410, end: 20251014
  2. KARDEGIC [Concomitant]
     Active Substance: ASPIRIN DL-LYSINE
     Indication: Cardiovascular event prophylaxis
     Dosage: 1 DOSAGE FORM, QD
     Route: 048
     Dates: start: 2022
  3. LERCANIDIPINE HYDROCHLORIDE [Concomitant]
     Active Substance: LERCANIDIPINE HYDROCHLORIDE
     Indication: Hypertension
     Dosage: 10 MG, 1X/DAY
     Route: 048
  4. NICORANDIL [Concomitant]
     Active Substance: NICORANDIL
     Dosage: 20 MG, 2X/DAY
     Route: 048
  5. METOPROLOL FUMARATE [Concomitant]
     Active Substance: METOPROLOL FUMARATE
     Indication: Hypertension
     Dosage: 25 MG, 1X/DAY
     Route: 048
  6. INSULIN ASPART [Concomitant]
     Active Substance: INSULIN ASPART
     Indication: Insulin-requiring type 2 diabetes mellitus
     Dosage: 1 DOSAGE FORM, QD
     Route: 058
  7. INSULIN GLARGINE [Concomitant]
     Active Substance: INSULIN GLARGINE
     Indication: Insulin-requiring type 2 diabetes mellitus
     Dosage: 1 DOSAGE FORM, QD
     Route: 058
  8. BILASTINE [Concomitant]
     Active Substance: BILASTINE
     Dosage: 20 MG, 1X/DAY
     Route: 048
  9. LEVOTHYROXINE [Concomitant]
     Active Substance: LEVOTHYROXINE
     Indication: Hypothyroidism
     Dosage: 25 UG, 1X/DAY
     Route: 048
  10. GAVISCON [ALGINIC ACID;ALUMINIUM HYDROXIDE;MAGNESIUM TRISILICATE;SODIU [Concomitant]
     Indication: Gastrooesophageal reflux disease
     Dosage: 1 DOSAGE FORM, QD
     Route: 048
  11. RACECADOTRIL [Concomitant]
     Active Substance: RACECADOTRIL
     Dosage: 175 MG, 1X/DAY
     Route: 048
  12. CYANOCOBALAMIN [Concomitant]
     Active Substance: CYANOCOBALAMIN
     Indication: Vitamin supplementation
     Dosage: 1 DOSAGE FORM, 1/WEEK
     Route: 048

REACTIONS (3)
  - Thrombocytopenia [Not Recovered/Not Resolved]
  - Neutropenia [Not Recovered/Not Resolved]
  - Anaemia [Not Recovered/Not Resolved]

NARRATIVE: CASE EVENT DATE: 20250101
